FAERS Safety Report 12327698 (Version 1)
Quarter: 2016Q2

REPORT INFORMATION
  Report Type: Spontaneous
  Country: IN (occurrence: IN)
  Receive Date: 20160503
  Receipt Date: 20160503
  Transmission Date: 20160815
  Serious: Yes (Other)
  Sender: FDA-Public Use
  Company Number: IN-PFIZER INC-2015334371

PATIENT
  Age: 72 Year
  Sex: Male

DRUGS (1)
  1. SUTENT [Suspect]
     Active Substance: SUNITINIB MALATE
     Indication: METASTATIC RENAL CELL CARCINOMA
     Dosage: 50 MG, 1X/DAY TWO WEEKS ON AND ONE WEEK OFF
     Route: 048
     Dates: start: 20150921, end: 20160324

REACTIONS (12)
  - Dry mouth [Not Recovered/Not Resolved]
  - Oral mucosal blistering [Not Recovered/Not Resolved]
  - Metastatic renal cell carcinoma [Unknown]
  - Dry throat [Not Recovered/Not Resolved]
  - Disease progression [Unknown]
  - Pulmonary oedema [Unknown]
  - Diarrhoea [Unknown]
  - Thyroid function test abnormal [Unknown]
  - Dysgeusia [Not Recovered/Not Resolved]
  - Asthenia [Unknown]
  - Blood pressure increased [Unknown]
  - Pyrexia [Recovered/Resolved]

NARRATIVE: CASE EVENT DATE: 201509
